FAERS Safety Report 6532031-X (Version None)
Quarter: 2010Q1

REPORT INFORMATION
  Report Type: 
  Country: None (occurrence: None)
  Receive Date: 20100108
  Receipt Date: 20091221
  Transmission Date: 20100710
  Serious: No
  Sender: FDA-Public Use
  Company Number: US-ROXANE LABORATORIES, INC.-2009-RO-01285RO

PATIENT

DRUGS (1)
  1. RAMIPRIL [Suspect]

REACTIONS (1)
  - HEADACHE [None]
